FAERS Safety Report 4341844-4 (Version None)
Quarter: 2004Q2

REPORT INFORMATION
  Report Type: 
  Country: None (occurrence: None)
  Receive Date: 20040415
  Receipt Date: 20040406
  Transmission Date: 20050107
  Serious: Yes (Life-Threatening)
  Sender: FDA-Public Use
  Company Number: 200410186BYL

PATIENT
  Age: 76 Year
  Sex: Female

DRUGS (10)
  1. ASPIRIN [Suspect]
     Indication: ANGINA PECTORIS
     Dosage: ORAL
     Route: 048
     Dates: start: 20040318, end: 20040324
  2. DIOVAN [Concomitant]
  3. MEVALOTIN [Concomitant]
  4. BASEN [Concomitant]
  5. NORVASC [Concomitant]
  6. MAGNESIUM OXIDE [Concomitant]
  7. OMEPRAZOLE [Concomitant]
  8. LASIX [Concomitant]
  9. ALDACTONE-A [Concomitant]
  10. CEROCRAL [Concomitant]

REACTIONS (1)
  - TOXIC EPIDERMAL NECROLYSIS [None]
